FAERS Safety Report 14187799 (Version 2)
Quarter: 2018Q1

REPORT INFORMATION
  Report Type: Spontaneous
  Country: US (occurrence: US)
  Receive Date: 20171114
  Receipt Date: 20180105
  Transmission Date: 20180508
  Serious: No
  Sender: FDA-Public Use
  Company Number: US-PFIZER INC-2017486174

PATIENT
  Age: 76 Year
  Sex: Female
  Weight: 81 kg

DRUGS (6)
  1. ZOMETA [Concomitant]
     Active Substance: ZOLEDRONIC ACID
     Indication: NUTRITIONAL SUPPLEMENTATION
     Dosage: UNKNOWN
     Dates: start: 2011
  2. IBRANCE [Suspect]
     Active Substance: PALBOCICLIB
     Indication: BREAST CANCER
     Dosage: 125 MG, CYCLIC (125MG CAPSULE, 1 CAPSULE BY MOUTH FOR 21 DAYS THEN OFF FOR 7 DAY)
     Route: 048
     Dates: start: 2016, end: 20171107
  3. IBRANCE [Suspect]
     Active Substance: PALBOCICLIB
     Dosage: 125 MG, CYCLIC(125MG CAPSULE, 1 CAPSULE BY MOUTH FOR 21 DAYS THEN OFF FOR 7 DAY)
     Route: 048
     Dates: start: 2016, end: 20171107
  4. FASLODEX [Concomitant]
     Active Substance: FULVESTRANT
     Indication: SECOND PRIMARY MALIGNANCY
     Dosage: UNKNOWN, TWO NEEDLES ONE ON EACH SIDE IN THE BUNS
     Dates: start: 2016, end: 20171107
  5. FUROSEMIDE. [Concomitant]
     Active Substance: FUROSEMIDE
     Indication: DIURETIC THERAPY
     Dosage: 80 MG, 2X/DAY (80MG TABLET BY MOUTH ONE IN THE MORNING AND ONE IN THE AFTERNOON)
     Route: 048
  6. POTASSIUM [Concomitant]
     Active Substance: POTASSIUM
     Indication: ELECTROLYTE SUBSTITUTION THERAPY
     Dosage: 40 MEQ, DAILY (20MEQ TWO TABLETS BY MOUTH IN THE MORNING)
     Route: 048

REACTIONS (2)
  - Body height decreased [Unknown]
  - Neoplasm progression [Not Recovered/Not Resolved]

NARRATIVE: CASE EVENT DATE: 20171107
